FAERS Safety Report 7810917-3 (Version None)
Quarter: 2011Q4

REPORT INFORMATION
  Report Type: 
  Country: None (occurrence: None)
  Receive Date: 20111013
  Receipt Date: 20111010
  Transmission Date: 20120403
  Serious: No
  Sender: FDA-Public Use
  Company Number: US-PFIZER INC-2011241973

PATIENT
  Sex: Male
  Weight: 88.889 kg

DRUGS (3)
  1. IBUPROFEN [Concomitant]
     Indication: HEADACHE
     Dosage: UNK
  2. NORVASC [Suspect]
     Indication: HYPERTENSION
     Dosage: 10 MG, DAILY
     Route: 048
     Dates: end: 20111009
  3. ACETYLSALICYLIC ACID [Concomitant]
     Indication: CARDIOVASCULAR EVENT PROPHYLAXIS
     Dosage: 81 MG, DAILY

REACTIONS (6)
  - FATIGUE [None]
  - TREMOR [None]
  - DRY MOUTH [None]
  - SWELLING [None]
  - MUSCLE TWITCHING [None]
  - MUSCULAR WEAKNESS [None]
